FAERS Safety Report 22590079 (Version 1)
Quarter: 2023Q2

REPORT INFORMATION
  Report Type: Report from Study
  Country: US (occurrence: US)
  Receive Date: 20230612
  Receipt Date: 20230612
  Transmission Date: 20230722
  Serious: Yes (Other)
  Sender: FDA-Public Use
  Company Number: US-EXELIXIS-CABO-23062055

PATIENT
  Age: 35 Year
  Sex: Female

DRUGS (2)
  1. CABOMETYX [Suspect]
     Active Substance: CABOZANTINIB S-MALATE
     Indication: Bone cancer
     Dosage: 60 MG, QD
     Route: 048
     Dates: start: 202302, end: 202305
  2. CABOMETYX [Suspect]
     Active Substance: CABOZANTINIB S-MALATE
     Indication: Chondrosarcoma

REACTIONS (6)
  - Toxic leukoencephalopathy [Unknown]
  - Oral mucosal erythema [Unknown]
  - Coating in mouth [Unknown]
  - Mouth ulceration [Unknown]
  - Palmar-plantar erythrodysaesthesia syndrome [Unknown]
  - Off label use [Unknown]

NARRATIVE: CASE EVENT DATE: 20230301
